FAERS Safety Report 4854148-8 (Version None)
Quarter: 2005Q4

REPORT INFORMATION
  Report Type: 
  Country: None (occurrence: None)
  Receive Date: 20051125
  Receipt Date: 20050815
  Transmission Date: 20060501
  Serious: Yes (Hospitalization, Other)
  Sender: FDA-Public Use
  Company Number: US-JNJFOC-20050502841

PATIENT
  Age: 48 Year
  Sex: Female
  Weight: 75.7507 kg

DRUGS (2)
  1. LEVAQUIN [Suspect]
     Indication: BRONCHITIS
     Dosage: 500 MG, 1 IN 1 DAY, ORAL
     Route: 048
     Dates: start: 20050428, end: 20050428
  2. ADVAIR DISKUS 100/50 [Concomitant]

REACTIONS (1)
  - ANAPHYLACTIC REACTION [None]
